FAERS Safety Report 10172555 (Version 1)
Quarter: 2014Q2

REPORT INFORMATION
  Report Type: Report from Study
  Country: GB (occurrence: GB)
  Receive Date: 20140515
  Receipt Date: 20140515
  Transmission Date: 20141212
  Serious: Yes (Other)
  Sender: FDA-Public Use
  Company Number: GB-AMGEN INC.-GBRCT2014034890

PATIENT
  Age: 55 Year
  Sex: Female
  Weight: 83 kg

DRUGS (9)
  1. ETANERCEPT [Suspect]
     Indication: PRODUCT USED FOR UNKNOWN INDICATION
     Dosage: 50 MG, QWK
     Route: 065
     Dates: start: 20120329, end: 20120530
  2. SOTALOL [Concomitant]
     Dosage: UNK UNK, UNK
  3. CETIRIZINE [Concomitant]
     Dosage: UNK UNK, UNK
  4. ESOMEPRAZOLE [Concomitant]
     Dosage: UNK UNK, UNK
  5. ARTHROTEC [Concomitant]
     Dosage: UNK
  6. COLOFAC                            /00139402/ [Concomitant]
     Dosage: UNK UNK, UNK
  7. TRAMADOL [Concomitant]
     Dosage: UNK
     Dates: start: 20121008
  8. MOVICOL                            /01625101/ [Concomitant]
     Dosage: UNK
     Dates: start: 20100715
  9. SOLPADOL [Concomitant]
     Dosage: UNK
     Dates: start: 20130426

REACTIONS (1)
  - Small cell lung cancer [Not Recovered/Not Resolved]
